FAERS Safety Report 15515252 (Version 2)
Quarter: 2018Q4

REPORT INFORMATION
  Report Type: Spontaneous
  Country: PT (occurrence: PT)
  Receive Date: 20181017
  Receipt Date: 20181031
  Transmission Date: 20190205
  Serious: Yes (Other)
  Sender: FDA-Public Use
  Company Number: PT-BRISTOL-MYERS SQUIBB COMPANY-BMS-2018-078173

PATIENT
  Age: 54 Year
  Sex: Male

DRUGS (7)
  1. LORAZEPAM. [Concomitant]
     Active Substance: LORAZEPAM
     Indication: ANXIETY
     Route: 065
  2. EFAVIRENZ. [Suspect]
     Active Substance: EFAVIRENZ
     Indication: HIV INFECTION
     Route: 065
  3. ABACAVIR. [Suspect]
     Active Substance: ABACAVIR
     Indication: CHRONIC HEPATITIS C
     Route: 065
  4. EFAVIRENZ. [Suspect]
     Active Substance: EFAVIRENZ
     Indication: CHRONIC HEPATITIS C
     Dosage: UNK
     Route: 065
  5. LAMIVUDINE. [Suspect]
     Active Substance: LAMIVUDINE
     Indication: HIV INFECTION
     Route: 065
  6. LAMIVUDINE. [Suspect]
     Active Substance: LAMIVUDINE
     Indication: CHRONIC HEPATITIS C
     Route: 065
  7. ABACAVIR. [Suspect]
     Active Substance: ABACAVIR
     Indication: HIV INFECTION
     Route: 065

REACTIONS (1)
  - Neuropsychiatric symptoms [Recovered/Resolved]
